FAERS Safety Report 6508180-9 (Version None)
Quarter: 2009Q4

REPORT INFORMATION
  Report Type: 
  Country: None (occurrence: None)
  Receive Date: 20091221
  Receipt Date: 20081222
  Transmission Date: 20100525
  Serious: No
  Sender: FDA-Public Use
  Company Number: US-ASTRAZENECA-2008UW28607

PATIENT
  Age: 78 Year
  Sex: Female
  Weight: 66.7 kg

DRUGS (7)
  1. CRESTOR [Suspect]
     Indication: BLOOD CHOLESTEROL INCREASED
     Route: 048
     Dates: start: 20081123
  2. TOPROL-XL [Concomitant]
     Route: 048
  3. DIOVAN [Concomitant]
  4. PLAVIX [Concomitant]
  5. ASPIRIN [Concomitant]
     Dosage: 81MG
  6. REFLUX MEDICATION [Concomitant]
  7. THYROID MEDICINE [Concomitant]

REACTIONS (1)
  - URINARY TRACT INFECTION [None]
